FAERS Safety Report 14074706 (Version 1)
Quarter: 2017Q4

REPORT INFORMATION
  Report Type: Spontaneous
  Country: CO (occurrence: CO)
  Receive Date: 20171010
  Receipt Date: 20171010
  Transmission Date: 20180321
  Serious: Yes (Hospitalization, Other)
  Sender: FDA-Public Use
  Company Number: CO-MYLANLABS-2017M1063127

PATIENT
  Age: 16 Year
  Sex: Female

DRUGS (6)
  1. PREDNISONE. [Suspect]
     Active Substance: PREDNISONE
     Indication: EOSINOPHILIC GRANULOMATOSIS WITH POLYANGIITIS
     Dosage: 0.5 MG/KG DAILY
     Route: 065
  2. RITUXIMAB. [Suspect]
     Active Substance: RITUXIMAB
     Indication: EOSINOPHILIC GRANULOMATOSIS WITH POLYANGIITIS
     Dosage: 1000 MG; THEN ADMINISTERED 2000 MG EVERY NINE MONTHS
     Route: 050
  3. PREDNISOLONE. [Suspect]
     Active Substance: PREDNISOLONE
     Indication: EOSINOPHILIC GRANULOMATOSIS WITH POLYANGIITIS
     Dosage: 0.5 MG/KG
     Route: 065
  4. CYCLOPHOSPHAMIDE. [Suspect]
     Active Substance: CYCLOPHOSPHAMIDE
     Indication: EOSINOPHILIC GRANULOMATOSIS WITH POLYANGIITIS
     Dosage: 500 MG
     Route: 042
  5. RITUXIMAB. [Suspect]
     Active Substance: RITUXIMAB
     Dosage: 2000 MG, UNK
     Route: 050
  6. METHYLPREDNISOLONE. [Suspect]
     Active Substance: METHYLPREDNISOLONE
     Indication: EOSINOPHILIC GRANULOMATOSIS WITH POLYANGIITIS
     Dosage: 1 G DAILY FOR THREE DAYS; THREE ADDITIONAL PUSLES
     Route: 065

REACTIONS (3)
  - Condition aggravated [Recovered/Resolved]
  - Cushing^s syndrome [Unknown]
  - Bronchospasm [Recovered/Resolved]
